FAERS Safety Report 23278709 (Version 2)
Quarter: 2025Q2

REPORT INFORMATION
  Report Type: Spontaneous
  Country: AU (occurrence: AU)
  Receive Date: 20231208
  Receipt Date: 20250624
  Transmission Date: 20250716
  Serious: Yes (Death, Other)
  Sender: ORGANON
  Company Number: None

PATIENT
  Sex: Female

DRUGS (4)
  1. MIRTAZAPINE [Suspect]
     Active Substance: MIRTAZAPINE
  2. DIAZEPAM [Suspect]
     Active Substance: DIAZEPAM
  3. ALCOHOL [Suspect]
     Active Substance: ALCOHOL
  4. OLANZAPINE [Suspect]
     Active Substance: OLANZAPINE

REACTIONS (2)
  - Aspiration [Fatal]
  - Toxicity to various agents [Fatal]

NARRATIVE: CASE EVENT DATE: 20200901
